FAERS Safety Report 21171588 (Version 1)
Quarter: 2022Q3

REPORT INFORMATION
  Report Type: Spontaneous
  Country: US (occurrence: None)
  Receive Date: 20220803
  Receipt Date: 20220803
  Transmission Date: 20221027
  Serious: Yes (Other)
  Sender: FDA-Public Use
  Company Number: None

PATIENT
  Age: 63 Year
  Sex: Female
  Weight: 61.65 kg

DRUGS (8)
  1. ACETAMINOPHEN\HYDROCODONE [Suspect]
     Active Substance: ACETAMINOPHEN\HYDROCODONE
     Indication: Procedural pain
     Dosage: OTHER QUANTITY : 2 TABLET(S);?FREQUENCY : AS NEEDED;?
     Route: 048
     Dates: start: 20220801, end: 20220801
  2. ESTRADIOL [Concomitant]
     Active Substance: ESTRADIOL
  3. PENICILLIN [Concomitant]
     Active Substance: PENICILLIN
  4. CALCIUM [Concomitant]
     Active Substance: CALCIUM
  5. VITAMIN D [Concomitant]
     Active Substance: VITAMIN D NOS
  6. VITAMIN B12 [Concomitant]
     Active Substance: CYANOCOBALAMIN
  7. FISH OIL [Concomitant]
     Active Substance: FISH OIL
  8. PLANT STEROLS [Concomitant]

REACTIONS (9)
  - Insomnia [None]
  - Nausea [None]
  - Constipation [None]
  - Somnolence [None]
  - Dizziness [None]
  - Headache [None]
  - Feeling jittery [None]
  - Agitation [None]
  - Confusional state [None]

NARRATIVE: CASE EVENT DATE: 20220802
